FAERS Safety Report 7254059-7 (Version None)
Quarter: 2011Q1

REPORT INFORMATION
  Report Type: 
  Country: None (occurrence: None)
  Receive Date: 20110129
  Receipt Date: 20100304
  Transmission Date: 20110831
  Serious: No
  Sender: FDA-Public Use
  Company Number: US-ABBOTT-10P-163-0631684-00

PATIENT
  Sex: Female
  Weight: 54.48 kg

DRUGS (4)
  1. HUMIRA [Suspect]
     Indication: CROHN'S DISEASE
     Route: 058
     Dates: start: 20090501, end: 20100117
  2. HUMIRA [Suspect]
     Route: 058
     Dates: start: 20100117, end: 20100204
  3. HUMIRA [Suspect]
     Route: 058
     Dates: start: 20100204
  4. PREDNISONE [Concomitant]
     Indication: PRODUCT USED FOR UNKNOWN INDICATION
     Dosage: 5-20

REACTIONS (4)
  - MALAISE [None]
  - THERAPY REGIMEN CHANGED [None]
  - DRUG INEFFECTIVE [None]
  - CROHN'S DISEASE [None]
